FAERS Safety Report 8604207 (Version 2)
Quarter: 2012Q4

REPORT INFORMATION
  Report Type: 
  Country: US (occurrence: US)
  Receive Date: 20120608
  Receipt Date: 20121026
  Transmission Date: 20130627
  Serious: No
  Sender: FDA-Public Use
  Company Number: US-PFIZER INC-2012133058

PATIENT
  Sex: Female

DRUGS (1)
  1. ALDACTONE [Suspect]

REACTIONS (1)
  - Dyspepsia [Recovering/Resolving]
